FAERS Safety Report 4681668-1 (Version None)
Quarter: 2005Q2

REPORT INFORMATION
  Report Type: 
  Country: None (occurrence: None)
  Receive Date: 20050602
  Receipt Date: 20050524
  Transmission Date: 20051028
  Serious: Yes (Hospitalization)
  Sender: FDA-Public Use
  Company Number: S05-USA-02747-01

PATIENT
  Age: 62 Year
  Sex: Female

DRUGS (8)
  1. THYROID TAB [Suspect]
     Indication: HYPOTHYROIDISM
     Dosage: 120 MG QD PO
     Route: 048
     Dates: start: 20041201, end: 20050406
  2. ALPRAZOLAM [Concomitant]
  3. PROMETRIUM [Concomitant]
  4. BUPROPION [Concomitant]
  5. ESTRODIOL (ESTROGENS) [Concomitant]
  6. ZETIA (EZTIMIBE) [Concomitant]
  7. DIOVAN [Concomitant]
  8. HYDROCHLOROTHIAZIDE [Concomitant]

REACTIONS (3)
  - DRUG INEFFECTIVE [None]
  - GASTROINTESTINAL OBSTRUCTION [None]
  - POOR QUALITY DRUG ADMINISTERED [None]
